FAERS Safety Report 8151612-3 (Version None)
Quarter: 2012Q1

REPORT INFORMATION
  Report Type: 
  Country: None (occurrence: None)
  Receive Date: 20120220
  Receipt Date: 20120210
  Transmission Date: 20120608
  Serious: Yes (Other)
  Sender: FDA-Public Use
  Company Number: US-ASTRAZENECA-2012SE08752

PATIENT
  Age: 59 Year
  Sex: Male
  Weight: 120.2 kg

DRUGS (17)
  1. CRESTOR [Suspect]
     Indication: BLOOD CHOLESTEROL INCREASED
     Route: 048
     Dates: start: 20111201, end: 20120101
  2. HUMULIN U [Concomitant]
     Indication: TYPE 2 DIABETES MELLITUS
     Dosage: 500
  3. MICARDIS HCT [Concomitant]
     Indication: HYPERTENSION
     Dosage: 80/20 MG DAILY
  4. VACCINIUM MACROCARPON [Concomitant]
     Indication: SUPPLEMENTATION THERAPY
     Dosage: SUPPLEMENT DAILY
  5. MILK THISTLE [Concomitant]
  6. ACETYLSALICYLIC ACID SRT [Concomitant]
  7. FUROSEMIDE [Concomitant]
     Indication: OEDEMA
  8. LINUM USITATISSIMUM SEED OIL [Concomitant]
  9. UBIDECARENONE [Concomitant]
  10. TRICOR [Suspect]
     Indication: BLOOD CHOLESTEROL INCREASED
     Route: 065
     Dates: start: 20110901, end: 20111109
  11. TRICOR [Suspect]
     Route: 065
     Dates: start: 20111101, end: 20111201
  12. DOXAZOSIN MESYLATE [Concomitant]
     Indication: HYPERTENSION
  13. LANSOPRAZOLE [Concomitant]
     Indication: ANTACID THERAPY
  14. OMEGA-3 MARINE TRIGLYCERIDES [Concomitant]
     Indication: BLOOD CHOLESTEROL INCREASED
  15. POTASSIUM CHLORIDE [Concomitant]
  16. CIMETIDINE [Concomitant]
     Indication: SKIN PAPILLOMA
  17. NICOTINIC ACID [Concomitant]
     Indication: BLOOD CHOLESTEROL INCREASED

REACTIONS (7)
  - EPISTAXIS [None]
  - PLATELET COUNT DECREASED [None]
  - ASTHENIA [None]
  - URTICARIA [None]
  - RENAL IMPAIRMENT [None]
  - COUGH [None]
  - DYSPNOEA [None]
